FAERS Safety Report 11434421 (Version 1)
Quarter: 2015Q3

REPORT INFORMATION
  Report Type: Spontaneous
  Country: US (occurrence: US)
  Receive Date: 20150831
  Receipt Date: 20150831
  Transmission Date: 20151125
  Serious: Yes (Hospitalization, Other)
  Sender: FDA-Public Use
  Company Number: US-JNJFOC-20150813196

PATIENT

DRUGS (5)
  1. DOXORUBICIN HYDROCHLORIDE. [Suspect]
     Active Substance: DOXORUBICIN HYDROCHLORIDE
     Indication: SOFT TISSUE SARCOMA
     Route: 042
  2. IFOSFAMIDE. [Suspect]
     Active Substance: IFOSFAMIDE
     Indication: SOFT TISSUE SARCOMA
     Dosage: 2.5 G/M2 ON DAY 1-3
     Route: 065
  3. MESNA. [Concomitant]
     Active Substance: MESNA
     Route: 065
  4. FILGRASTIM [Concomitant]
     Active Substance: FILGRASTIM
     Route: 065
  5. PEGFILGRASTIM [Concomitant]
     Active Substance: PEGFILGRASTIM
     Route: 065

REACTIONS (15)
  - Hypokalaemia [Unknown]
  - Off label use [Unknown]
  - Febrile neutropenia [Unknown]
  - Gastrointestinal disorder [Unknown]
  - Toxicity to various agents [Unknown]
  - Cardiotoxicity [Unknown]
  - Ataxia [Unknown]
  - Neutropenia [Unknown]
  - Haematotoxicity [Unknown]
  - Gastrointestinal toxicity [Unknown]
  - Cardiac disorder [Unknown]
  - Thrombocytopenia [Unknown]
  - Infection [Unknown]
  - Neurotoxicity [Unknown]
  - Anaemia [Unknown]
